FAERS Safety Report 7269052-8 (Version None)
Quarter: 2011Q1

REPORT INFORMATION
  Report Type: 
  Country: None (occurrence: None)
  Receive Date: 20110202
  Receipt Date: 20110124
  Transmission Date: 20110831
  Serious: Yes (Hospitalization)
  Sender: FDA-Public Use
  Company Number: US-BIOGENIDEC-2011BI002790

PATIENT
  Sex: Female

DRUGS (5)
  1. CLONAZEPAM [Concomitant]
  2. PREVACID [Concomitant]
  3. AVONEX [Suspect]
     Route: 030
     Dates: start: 20030101
  4. CYMBALTA [Concomitant]
  5. AVONEX [Suspect]
     Indication: MULTIPLE SCLEROSIS
     Route: 030
     Dates: start: 20021201, end: 20030101

REACTIONS (8)
  - MULTIPLE SCLEROSIS RELAPSE [None]
  - THYROID DISORDER [None]
  - DYSPNOEA [None]
  - BENIGN OESOPHAGEAL NEOPLASM [None]
  - COLONIC POLYP [None]
  - OCCULT BLOOD POSITIVE [None]
  - OESOPHAGEAL NEOPLASM [None]
  - INFLUENZA [None]
